FAERS Safety Report 7505151-0 (Version None)
Quarter: 2011Q2

REPORT INFORMATION
  Report Type: 
  Country: None (occurrence: None)
  Receive Date: 20110526
  Receipt Date: 20110512
  Transmission Date: 20111010
  Serious: Yes (Hospitalization, Other)
  Sender: FDA-Public Use
  Company Number: US-BAYER-201017151NA

PATIENT
  Age: 31 Year
  Sex: Female
  Weight: 86 kg

DRUGS (7)
  1. HYOSCYAMINE [Concomitant]
  2. YASMIN [Suspect]
     Indication: CONTRACEPTION
     Route: 048
     Dates: start: 20070404, end: 20080831
  3. YAZ [Suspect]
     Route: 048
  4. DROSPIRENONE AND ETHINYL ESTRADIOL [Concomitant]
  5. FLUCONAZOLE [Concomitant]
  6. HYDRO-TUSSIN [Concomitant]
  7. AZITHROMYCIN [Concomitant]
     Dates: start: 20080221, end: 20091002

REACTIONS (3)
  - BACK PAIN [None]
  - GALLBLADDER CHOLESTEROLOSIS [None]
  - CHOLECYSTITIS CHRONIC [None]
